FAERS Safety Report 6852420-3 (Version None)
Quarter: 2010Q3

REPORT INFORMATION
  Report Type: 
  Country: None (occurrence: None)
  Receive Date: 20100717
  Receipt Date: 20071112
  Transmission Date: 20110219
  Serious: No
  Sender: FDA-Public Use
  Company Number: US-PFIZER INC-2007096543

PATIENT
  Sex: Female
  Weight: 73 kg

DRUGS (8)
  1. CHANTIX [Suspect]
     Indication: SMOKING CESSATION THERAPY
     Dates: start: 20070910, end: 20071101
  2. LIPITOR [Concomitant]
  3. CYMBALTA [Concomitant]
  4. FENTANYL [Concomitant]
  5. VITAMIN C [Concomitant]
  6. GENERAL NUTRIENTS/HERBAL NOS/MINERALS NOS/VITAMINS NOS [Concomitant]
  7. FISH OIL [Concomitant]
  8. LUNESTA [Concomitant]

REACTIONS (4)
  - DEHYDRATION [None]
  - EATING DISORDER [None]
  - GASTROENTERITIS VIRAL [None]
  - VOMITING [None]
